FAERS Safety Report 5919196-5 (Version None)
Quarter: 2008Q4

REPORT INFORMATION
  Report Type: 
  Country: None (occurrence: None)
  Receive Date: 20081015
  Receipt Date: 20081003
  Transmission Date: 20090506
  Serious: Yes (Hospitalization)
  Sender: FDA-Public Use
  Company Number: JP-ROCHE-498139

PATIENT
  Sex: Female
  Weight: 52.3 kg

DRUGS (9)
  1. METHOXY POLYETHYLENE GLYCOL-EPOETIN BETA [Suspect]
     Indication: NEPHROGENIC ANAEMIA
     Dosage: ADMINISTRATION DURING THE WEEK AT THE FIRST DIALYSIS END ON THE DIALYSIS DAY
     Route: 042
     Dates: start: 20070416, end: 20070416
  2. ARGAMATE [Concomitant]
     Route: 048
     Dates: start: 20041220
  3. SELBEX [Concomitant]
     Dosage: AFTER THE MEAL
     Route: 048
     Dates: start: 20050105
  4. PRECIPITATED CALCIUM CARBONATE [Concomitant]
     Route: 048
     Dates: start: 20060731
  5. ASPIRIN [Concomitant]
     Route: 048
     Dates: start: 20060320
  6. FESIN [Concomitant]
     Dosage: GENERIC NAME REPORTED AS SACCHARATED FERRIC OXIDE.
     Route: 042
     Dates: start: 20061020
  7. PHOSBLOCK [Concomitant]
     Route: 048
     Dates: start: 20030630
  8. ONE-ALPHA [Concomitant]
     Dosage: REPORTED AS ONEALFA
     Route: 048
     Dates: start: 19930419
  9. LIDOCAINE [Concomitant]
     Dosage: FORM: TAPE
     Route: 061
     Dates: start: 20020315

REACTIONS (3)
  - HAEMATOCRIT INCREASED [None]
  - SHUNT MALFUNCTION [None]
  - SHUNT STENOSIS [None]
